FAERS Safety Report 6588731-9 (Version None)
Quarter: 2010Q1

REPORT INFORMATION
  Report Type: 
  Country: None (occurrence: None)
  Receive Date: 20100218
  Receipt Date: 20100205
  Transmission Date: 20100710
  Serious: Yes (Hospitalization, Other)
  Sender: FDA-Public Use
  Company Number: PHEH2008US05894

PATIENT
  Sex: Male
  Weight: 83.6 kg

DRUGS (25)
  1. ZELNORM [Suspect]
     Indication: GASTROENTERITIS
     Dosage: 2 MG, BID
     Route: 048
     Dates: start: 20051121
  2. ZELNORM [Suspect]
     Indication: ABDOMINAL DISTENSION
     Dosage: 6 MG, QD
  3. FLOMAX [Concomitant]
     Dosage: .4MG PO QD
     Route: 048
  4. REGLAN [Concomitant]
     Dosage: 10 MG, PRN
     Route: 048
  5. PLAVIX [Concomitant]
     Dosage: 75 MG, QD
     Route: 048
  6. NORVASC [Concomitant]
     Dosage: 10 MG, QD
     Route: 048
  7. PROTONIX [Concomitant]
     Dosage: 40 MG, QD
     Route: 048
  8. COREG [Concomitant]
     Dosage: 25 MG, BID
     Route: 048
  9. LIPITOR [Concomitant]
     Dosage: 20 MG, QD
  10. AMBIEN [Concomitant]
     Dosage: 12.5 MG, QD
     Route: 048
  11. LASIX [Concomitant]
     Dosage: 40 MG, BID
     Route: 048
  12. ISOSORBIDE [Concomitant]
     Dosage: 60 MG, QD
  13. LANTUS [Concomitant]
     Dosage: 10 U, QD
     Route: 058
  14. PROCRIT                            /00909301/ [Concomitant]
     Dosage: 1000 U, UNK
  15. INSULIN [Concomitant]
     Dosage: 2 MG, QD ^EXUBERA^
  16. AVAPRO [Concomitant]
     Dosage: UNK
     Route: 048
  17. LISINOPRIL [Concomitant]
     Dosage: UNK
     Route: 048
  18. TAPAZOLE [Concomitant]
     Dosage: UNK
     Dates: start: 20070901, end: 20070911
  19. PROPYLTHIOURACIL [Concomitant]
     Dosage: 200 MG, QD
     Dates: start: 20070904
  20. COUMADIN [Concomitant]
     Dosage: UNK
     Route: 048
  21. ASPIRIN [Concomitant]
  22. LOVENOX [Concomitant]
  23. LEVAQUIN [Concomitant]
  24. ZESTRIL [Concomitant]
  25. MAGNESIUM OXIDE [Concomitant]

REACTIONS (27)
  - ABDOMINAL DISTENSION [None]
  - ABDOMINAL PAIN [None]
  - ACUTE MYOCARDIAL INFARCTION [None]
  - ANAEMIA [None]
  - BACTERIAL INFECTION [None]
  - CARDIAC FAILURE CONGESTIVE [None]
  - CEREBROVASCULAR ACCIDENT [None]
  - CHEST PAIN [None]
  - DECREASED APPETITE [None]
  - DEHYDRATION [None]
  - DYSPNOEA [None]
  - ECONOMIC PROBLEM [None]
  - EMOTIONAL DISTRESS [None]
  - FATIGUE [None]
  - GASTRITIS [None]
  - GASTROINTESTINAL HAEMORRHAGE [None]
  - HYPOTHYROIDISM [None]
  - IMPAIRED GASTRIC EMPTYING [None]
  - MELAENA [None]
  - MULTIPLE INJURIES [None]
  - NEPHROPATHY [None]
  - OEDEMA PERIPHERAL [None]
  - PROSTATE CANCER [None]
  - RENAL FAILURE [None]
  - RENAL FAILURE CHRONIC [None]
  - SHOCK [None]
  - WEIGHT DECREASED [None]
